FAERS Safety Report 7313821-2 (Version None)
Quarter: 2011Q1

REPORT INFORMATION
  Report Type: 
  Country: None (occurrence: None)
  Receive Date: 20110218
  Receipt Date: 20110218
  Transmission Date: 20110831
  Serious: Yes (Hospitalization)
  Sender: FDA-Public Use
  Company Number: None

PATIENT
  Age: 22 Year
  Sex: Male
  Weight: 80.5 kg

DRUGS (12)
  1. FENOFIBRATE [Concomitant]
  2. QUETIAPINE [Concomitant]
  3. CALCIUM CARBONATE/VIT D [Concomitant]
  4. FISH OIL [Concomitant]
  5. SERTRALINE [Concomitant]
  6. BENZTROPINE MESYLATE [Concomitant]
  7. CHLORPROMAZINE [Concomitant]
  8. LACTULOSE [Concomitant]
  9. LITHIUM CARBONATE [Suspect]
     Indication: AFFECTIVE DISORDER
     Dosage: 300 MG BID PO
     Route: 048
     Dates: start: 20101210, end: 20110207
  10. METHYLPHENIDATE [Concomitant]
  11. FIBERCON [Concomitant]
  12. CLONAZEPAM [Concomitant]

REACTIONS (4)
  - ANTIPSYCHOTIC DRUG LEVEL ABOVE THERAPEUTIC [None]
  - GAIT DISTURBANCE [None]
  - HYPERCALCAEMIA [None]
  - BLOOD CREATININE INCREASED [None]
